FAERS Safety Report 9089294 (Version 1)
Quarter: 2013Q1

REPORT INFORMATION
  Report Type: Spontaneous
  Country: US (occurrence: US)
  Receive Date: 20130201
  Receipt Date: 20130201
  Transmission Date: 20140127
  Serious: No
  Sender: FDA-Public Use
  Company Number: 2009BI018955

PATIENT
  Age: 47 Year
  Sex: Female

DRUGS (1)
  1. TYSABRI [Suspect]
     Indication: MULTIPLE SCLEROSIS
     Route: 042
     Dates: start: 20090519, end: 20090616

REACTIONS (3)
  - Hypersensitivity [Recovered/Resolved]
  - Mobility decreased [Recovered/Resolved]
  - Nasopharyngitis [Not Recovered/Not Resolved]
